FAERS Safety Report 25113555 (Version 1)
Quarter: 2025Q1

REPORT INFORMATION
  Report Type: Report from Study
  Country: CA (occurrence: CA)
  Receive Date: 20250324
  Receipt Date: 20250324
  Transmission Date: 20250409
  Serious: Yes (Death, Other)
  Sender: TAKEDA
  Company Number: CA-TAKEDA-2025TUS029926

PATIENT
  Age: 66 Year
  Sex: Male

DRUGS (20)
  1. VEDOLIZUMAB [Suspect]
     Active Substance: VEDOLIZUMAB
     Indication: Crohn^s disease
  2. VEDOLIZUMAB [Suspect]
     Active Substance: VEDOLIZUMAB
     Dosage: 300 MILLIGRAM, Q4WEEKS
     Dates: start: 20241016, end: 20250205
  3. PREDNISONE [Concomitant]
     Active Substance: PREDNISONE
  4. MESALAMINE [Concomitant]
     Active Substance: MESALAMINE
  5. CELLCEPT [Concomitant]
     Active Substance: MYCOPHENOLATE MOFETIL
  6. ARANESP [Concomitant]
     Active Substance: DARBEPOETIN ALFA
  7. TACROLIMUS [Concomitant]
     Active Substance: TACROLIMUS
  8. ASPIRIN [Concomitant]
     Active Substance: ASPIRIN
  9. CANDESARTAN [Concomitant]
     Active Substance: CANDESARTAN
  10. ALLOPURINOL [Concomitant]
     Active Substance: ALLOPURINOL
  11. AMLODIPINE [Concomitant]
     Active Substance: AMLODIPINE BESYLATE
  12. FUROSEMIDE [Concomitant]
     Active Substance: FUROSEMIDE
  13. RANITIDINE [Concomitant]
     Active Substance: RANITIDINE
  14. METOPROLOL [Concomitant]
     Active Substance: METOPROLOL
  15. SODIUM BICARBONATE [Concomitant]
     Active Substance: SODIUM BICARBONATE
  16. CALCIUM [Concomitant]
     Active Substance: CALCIUM
  17. MAGNESIUM [Concomitant]
     Active Substance: MAGNESIUM
  18. FERROUS SULFATE [Concomitant]
     Active Substance: FERROUS SULFATE
  19. ATORVASTATIN [Concomitant]
     Active Substance: ATORVASTATIN
  20. CINACALCET [Concomitant]
     Active Substance: CINACALCET

REACTIONS (2)
  - Death [Fatal]
  - Off label use [Unknown]

NARRATIVE: CASE EVENT DATE: 20241016
